FAERS Safety Report 24255847 (Version 2)
Quarter: 2024Q3

REPORT INFORMATION
  Report Type: Report from Study
  Country: US (occurrence: US)
  Receive Date: 20240827
  Receipt Date: 20240923
  Transmission Date: 20241017
  Serious: No
  Sender: SUNOVION
  Company Number: US-SMPA-2024SPA000512AA

PATIENT

DRUGS (2)
  1. ORGOVYX [Suspect]
     Active Substance: RELUGOLIX
     Indication: Prostate cancer
     Dosage: 360 MG
     Route: 048
     Dates: start: 20240701, end: 20240701
  2. ORGOVYX [Suspect]
     Active Substance: RELUGOLIX
     Dosage: 120 MG, QD
     Route: 048
     Dates: start: 20240702

REACTIONS (7)
  - Meniscus injury [Unknown]
  - Synovial cyst [Unknown]
  - Back injury [Unknown]
  - Arthritis [Unknown]
  - Arthralgia [Unknown]
  - Insomnia [Unknown]
  - Back pain [Unknown]
